FAERS Safety Report 7103399-0 (Version None)
Quarter: 2010Q4

REPORT INFORMATION
  Report Type: 
  Country: None (occurrence: None)
  Receive Date: 20101115
  Receipt Date: 20101104
  Transmission Date: 20110411
  Serious: Yes (Hospitalization)
  Sender: FDA-Public Use
  Company Number: SA-BAYER-201045469GPV

PATIENT
  Age: 46 Year
  Sex: Male

DRUGS (1)
  1. CIPROFLOXACIN [Suspect]
     Indication: URINARY TRACT INFECTION PSEUDOMONAL
     Dosage: TOTAL DAILY DOSE: 500 MG
     Route: 048

REACTIONS (14)
  - ASTERIXIS [None]
  - ASTHENIA [None]
  - CONFUSIONAL STATE [None]
  - DISORIENTATION [None]
  - DISTURBANCE IN ATTENTION [None]
  - DYSAESTHESIA [None]
  - ENCEPHALOPATHY [None]
  - HYPERREFLEXIA [None]
  - INCOHERENT [None]
  - MYOCLONUS [None]
  - NERVOUSNESS [None]
  - PARAESTHESIA [None]
  - SOMNOLENCE [None]
  - TREMOR [None]
